FAERS Safety Report 4388930-0 (Version None)
Quarter: 2004Q2

REPORT INFORMATION
  Report Type: 
  Country: None (occurrence: None)
  Receive Date: 20040628
  Receipt Date: 20040614
  Transmission Date: 20050107
  Serious: No
  Sender: FDA-Public Use
  Company Number: 03P-163-0218943-00

PATIENT
  Age: 44 Year
  Sex: Female

DRUGS (6)
  1. TRICOR [Suspect]
     Indication: BLOOD CHOLESTEROL
     Dosage: PER ORAL
     Route: 048
     Dates: start: 20020315, end: 20020401
  2. PROTONIX [Suspect]
     Indication: GASTROOESOPHAGEAL REFLUX DISEASE
     Dosage: 40 MG, 1 IN 1 D, PER ORAL
     Route: 048
     Dates: start: 20010914, end: 20020405
  3. METFORMIN HCL [Suspect]
     Indication: DIABETES MELLITUS
     Dosage: 500 MG, 2 IN 1 D, PER ORAL
     Route: 048
     Dates: start: 20010914
  4. MINOCYCLINE [Suspect]
     Dates: end: 20020405
  5. GEMFIBROZIL [Concomitant]
  6. ASPIRIN [Concomitant]

REACTIONS (18)
  - ARTHRALGIA [None]
  - ASTHENIA [None]
  - BLOOD ALBUMIN DECREASED [None]
  - BLOOD CHOLESTEROL ABNORMAL [None]
  - DERMATITIS ACNEIFORM [None]
  - DRUG ERUPTION [None]
  - FATIGUE [None]
  - HEPATIC STEATOSIS [None]
  - HEPATITIS [None]
  - HEPATOCELLULAR DAMAGE [None]
  - LICHEN PLANUS [None]
  - MYALGIA [None]
  - OEDEMA PERIPHERAL [None]
  - PHARYNGOLARYNGEAL PAIN [None]
  - PYREXIA [None]
  - SCAR [None]
  - SUNBURN [None]
  - VIRAL INFECTION [None]
